FAERS Safety Report 17583131 (Version 1)
Quarter: 2020Q1

REPORT INFORMATION
  Report Type: Spontaneous
  Country: PT (occurrence: PT)
  Receive Date: 20200325
  Receipt Date: 20200325
  Transmission Date: 20200409
  Serious: Yes (Life-Threatening, Hospitalization, Disabling, Other)
  Sender: FDA-Public Use
  Company Number: PT-AUROBINDO-AUR-APL-2017-21634

PATIENT
  Age: 55 Year
  Sex: Female
  Weight: 60 kg

DRUGS (11)
  1. CEFUROXIME. [Suspect]
     Active Substance: CEFUROXIME
     Indication: CULTURE URINE POSITIVE
     Dosage: 1500 MILLIGRAM, ONCE A DAY
     Route: 048
     Dates: start: 20141024
  2. FIBRISTAL [Suspect]
     Active Substance: ULIPRISTAL
     Indication: UTERINE LEIOMYOMA
  3. FIBRISTAL [Suspect]
     Active Substance: ULIPRISTAL
     Indication: MENOMETRORRHAGIA
  4. ESMYA [Suspect]
     Active Substance: ULIPRISTAL ACETATE
     Indication: MENOMETRORRHAGIA
  5. FIBRISTAL [Suspect]
     Active Substance: ULIPRISTAL
     Indication: UTERINE ENLARGEMENT
     Dosage: 1 DOSAGE FORM, ONCE A DAY
     Route: 048
     Dates: start: 20140711, end: 20141027
  6. ESMYA [Suspect]
     Active Substance: ULIPRISTAL ACETATE
     Indication: UTERINE ENLARGEMENT
     Dosage: 5 MILLIGRAM, ONCE A DAY
     Route: 065
     Dates: start: 20140711, end: 20141027
  7. ESMYA [Suspect]
     Active Substance: ULIPRISTAL ACETATE
     Indication: UTERINE LEIOMYOMA
  8. N-ACETYLCYSTEINE [Concomitant]
     Active Substance: ACETYLCYSTEINE
     Indication: PRODUCT USED FOR UNKNOWN INDICATION
     Dosage: UNK
     Route: 065
  9. PREDNISOLONE. [Concomitant]
     Active Substance: PREDNISOLONE
     Indication: PRODUCT USED FOR UNKNOWN INDICATION
     Dosage: UNK
     Route: 065
  10. CEFUROXIME. [Suspect]
     Active Substance: CEFUROXIME
     Indication: KLEBSIELLA INFECTION
  11. CEFUROXIME. [Suspect]
     Active Substance: CEFUROXIME
     Indication: URINARY TRACT INFECTION BACTERIAL

REACTIONS (5)
  - Klebsiella infection [Recovered/Resolved]
  - Urinary tract infection bacterial [Recovered/Resolved]
  - Insomnia [Recovered/Resolved]
  - Hepatic failure [Recovered/Resolved with Sequelae]
  - Intentional product use issue [Recovered/Resolved]

NARRATIVE: CASE EVENT DATE: 201410
